FAERS Safety Report 10440068 (Version 1)
Quarter: 2014Q3

REPORT INFORMATION
  Report Type: Spontaneous
  Country: US (occurrence: US)
  Receive Date: 20140908
  Receipt Date: 20140908
  Transmission Date: 20150326
  Serious: Yes (Hospitalization, Other)
  Sender: FDA-Public Use
  Company Number: US-BRISTOL-MYERS SQUIBB COMPANY-20684924

PATIENT
  Age: 55 Year
  Sex: Male
  Weight: 167.8 kg

DRUGS (1)
  1. ABILIFY [Suspect]
     Active Substance: ARIPIPRAZOLE
     Indication: BIPOLAR DISORDER
     Route: 048
     Dates: start: 200910, end: 201112

REACTIONS (4)
  - Weight increased [Unknown]
  - Restlessness [Recovered/Resolved]
  - Judgement impaired [Unknown]
  - Pain in extremity [Unknown]

NARRATIVE: CASE EVENT DATE: 200910
